FAERS Safety Report 14196603 (Version 1)
Quarter: 2017Q4

REPORT INFORMATION
  Report Type: Spontaneous
  Country: FR (occurrence: FR)
  Receive Date: 20171116
  Receipt Date: 20171116
  Transmission Date: 20180321
  Serious: Yes (Other)
  Sender: FDA-Public Use
  Company Number: FR-MERCK KGAA-2034385

PATIENT
  Age: 59 Year
  Sex: Female

DRUGS (1)
  1. NOVOTHYROX [Suspect]
     Active Substance: LEVOTHYROXINE SODIUM
     Indication: THYROID DISORDER
     Dates: start: 201704

REACTIONS (12)
  - Vertigo [None]
  - Sensory loss [None]
  - Crying [None]
  - Nausea [None]
  - Syncope [None]
  - Gastrointestinal disorder [None]
  - Paraesthesia [None]
  - Migraine with aura [None]
  - Malaise [None]
  - Tension [None]
  - Depression [None]
  - Muscle spasms [None]

NARRATIVE: CASE EVENT DATE: 201704
